FAERS Safety Report 8763249 (Version 1)
Quarter: 2012Q4

REPORT INFORMATION
  Report Type: 
  Country: US (occurrence: US)
  Receive Date: 20120831
  Receipt Date: 20120831
  Transmission Date: 20130627
  Serious: No
  Sender: FDA-Public Use
  Company Number: US-JNJFOC-20120808924

PATIENT
  Age: 70 None
  Sex: Female
  Weight: 136.08 kg

DRUGS (3)
  1. DURAGESIC [Suspect]
     Indication: PAIN
     Route: 062
     Dates: start: 201206
  2. DURAGESIC [Suspect]
     Indication: PAIN
     Route: 062
     Dates: start: 201208
  3. DURAGESIC [Suspect]
     Indication: PAIN
     Route: 062
     Dates: start: 2012

REACTIONS (5)
  - Inadequate analgesia [Not Recovered/Not Resolved]
  - Wrong technique in drug usage process [Not Recovered/Not Resolved]
  - Product quality issue [Unknown]
  - Product adhesion issue [Unknown]
  - Product quality issue [Unknown]
